FAERS Safety Report 4295067-8 (Version None)
Quarter: 2004Q1

REPORT INFORMATION
  Report Type: 
  Country: None (occurrence: None)
  Receive Date: 20040212
  Receipt Date: 20040204
  Transmission Date: 20041129
  Serious: Yes (Other)
  Sender: FDA-Public Use
  Company Number: US-JNJFOC-20040201573

PATIENT
  Sex: Male

DRUGS (1)
  1. ULTRAM [Suspect]
     Dosage: ORAL
     Route: 048

REACTIONS (1)
  - VISUAL ACUITY REDUCED [None]
